FAERS Safety Report 8163390-2 (Version None)
Quarter: 2012Q1

REPORT INFORMATION
  Report Type: 
  Country: None (occurrence: None)
  Receive Date: 20120224
  Receipt Date: 20120210
  Transmission Date: 20120608
  Serious: Yes (Other)
  Sender: FDA-Public Use
  Company Number: US-AMGEN-USASP2012009457

PATIENT
  Age: 36 Month
  Sex: Female

DRUGS (2)
  1. SULINDAC [Concomitant]
     Dosage: UNK
  2. ENBREL [Suspect]
     Indication: PRODUCT USED FOR UNKNOWN INDICATION
     Dosage: 3 ML, UNK
     Dates: start: 20120126

REACTIONS (4)
  - UNRESPONSIVE TO STIMULI [None]
  - MALAISE [None]
  - VOMITING [None]
  - DIARRHOEA [None]
